FAERS Safety Report 6258035-2 (Version None)
Quarter: 2009Q3

REPORT INFORMATION
  Report Type: 
  Country: None (occurrence: None)
  Receive Date: 20090702
  Receipt Date: 20090619
  Transmission Date: 20100115
  Serious: Yes (Life-Threatening)
  Sender: FDA-Public Use
  Company Number: 006601

PATIENT
  Age: 86 Year
  Sex: Male

DRUGS (7)
  1. PLETAL [Suspect]
     Indication: INTERMITTENT CLAUDICATION
     Dosage: 100 MG, QD
     Route: 048
     Dates: start: 20090504, end: 20090508
  2. DIGOXIN [Concomitant]
  3. TICLOPIDINE HYDROCHLORIDE [Concomitant]
  4. CALCIUM CHANNEL BLOCKERS [Concomitant]
  5. LANSOPRAZOLE [Concomitant]
  6. LASIX [Concomitant]
  7. PERINDOPRIL ERBUMINE [Concomitant]

REACTIONS (6)
  - ASTHENIA [None]
  - CARDIAC FAILURE [None]
  - DYSPNOEA [None]
  - HYPOTENSION [None]
  - RALES [None]
  - TACHYARRHYTHMIA [None]
